FAERS Safety Report 11087613 (Version 1)
Quarter: 2015Q2

REPORT INFORMATION
  Report Type: Spontaneous
  Country: GB (occurrence: GB)
  Receive Date: 20150504
  Receipt Date: 20150504
  Transmission Date: 20150821
  Serious: No
  Sender: FDA-Public Use
  Company Number: GB-JNJFOC-20150423677

PATIENT

DRUGS (1)
  1. DUROGESIC DTRANS [Suspect]
     Active Substance: FENTANYL
     Indication: PRODUCT USED FOR UNKNOWN INDICATION
     Route: 062

REACTIONS (2)
  - Incorrect drug administration duration [Unknown]
  - Accidental overdose [Unknown]
